FAERS Safety Report 12715878 (Version 1)
Quarter: 2016Q3

REPORT INFORMATION
  Report Type: Spontaneous
  Country: US (occurrence: US)
  Receive Date: 20160906
  Receipt Date: 20160906
  Transmission Date: 20161109
  Serious: No
  Sender: FDA-Public Use
  Company Number: US-BAYER-2016-171762

PATIENT
  Age: 89 Year
  Sex: Female
  Weight: 64.4 kg

DRUGS (2)
  1. MIRALAX [Suspect]
     Active Substance: POLYETHYLENE GLYCOL 3350
     Indication: CONSTIPATION
     Dosage: UNK
     Route: 048
     Dates: start: 2011, end: 20160901
  2. BAYER LOW DOSE [Concomitant]
     Active Substance: ASPIRIN

REACTIONS (2)
  - Diarrhoea [None]
  - Product use issue [None]

NARRATIVE: CASE EVENT DATE: 201607
